FAERS Safety Report 17911218 (Version 1)
Quarter: 2020Q2

REPORT INFORMATION
  Report Type: Spontaneous
  Country: US (occurrence: US)
  Receive Date: 20200617
  Receipt Date: 20200617
  Transmission Date: 20200714
  Serious: Yes (Other)
  Sender: FDA-Public Use
  Company Number: None

PATIENT
  Age: 35 Year
  Sex: Female
  Weight: 132.3 kg

DRUGS (10)
  1. GLIMERPIRIDE [Concomitant]
     Active Substance: GLIMEPIRIDE
  2. SPIRONOLACTONE. [Concomitant]
     Active Substance: SPIRONOLACTONE
  3. OZEMPIC [Concomitant]
     Active Substance: SEMAGLUTIDE
  4. BIRTH CONTROL (LOESTRIN) [Concomitant]
  5. METFORMIN [Suspect]
     Active Substance: METFORMIN HYDROCHLORIDE
     Indication: DIABETES MELLITUS
     Dosage: ?          OTHER FREQUENCY:2 AT EVENING MEAL;?
     Route: 048
     Dates: start: 20200311, end: 20200528
  6. PHENTERMINE. [Concomitant]
     Active Substance: PHENTERMINE
  7. BABY ASPIRIN [Concomitant]
     Active Substance: ASPIRIN
  8. TOPAMAX [Concomitant]
     Active Substance: TOPIRAMATE
  9. ZYRTEC [Concomitant]
     Active Substance: CETIRIZINE HYDROCHLORIDE
  10. VITAMIN B12 [Concomitant]
     Active Substance: CYANOCOBALAMIN

REACTIONS (5)
  - Skin discolouration [None]
  - Diarrhoea [None]
  - Weight decreased [None]
  - Vomiting [None]
  - Recalled product administered [None]

NARRATIVE: CASE EVENT DATE: 20200311
